FAERS Safety Report 25288664 (Version 1)
Quarter: 2025Q2

REPORT INFORMATION
  Report Type: Spontaneous
  Country: US (occurrence: US)
  Receive Date: 20250509
  Receipt Date: 20250509
  Transmission Date: 20250716
  Serious: No
  Sender: UCB
  Company Number: US-UCBSA-2024014121

PATIENT
  Sex: Male

DRUGS (8)
  1. CIMZIA [Suspect]
     Active Substance: CERTOLIZUMAB PEGOL
     Indication: Psoriasis
  2. STELARA [Concomitant]
     Active Substance: USTEKINUMAB
     Indication: Psoriasis
  3. COSENTYX [Concomitant]
     Active Substance: SECUKINUMAB
     Indication: Psoriasis
  4. ENBREL [Concomitant]
     Active Substance: ETANERCEPT
     Indication: Psoriasis
  5. TALTZ [Concomitant]
     Active Substance: IXEKIZUMAB
     Indication: Psoriasis
  6. HUMIRA [Concomitant]
     Active Substance: ADALIMUMAB
     Indication: Psoriasis
  7. SKYRIZI [Concomitant]
     Active Substance: RISANKIZUMAB-RZAA
     Indication: Psoriasis
  8. METHOTREXATE [Concomitant]
     Active Substance: METHOTREXATE
     Indication: Psoriasis

REACTIONS (3)
  - Treatment failure [Unknown]
  - Drug intolerance [Unknown]
  - Contraindicated product administered [Unknown]
